FAERS Safety Report 4842727-3 (Version None)
Quarter: 2005Q4

REPORT INFORMATION
  Report Type: 
  Country: None (occurrence: None)
  Receive Date: 20051201
  Receipt Date: 20050919
  Transmission Date: 20060501
  Serious: Yes (Life-Threatening, Hospitalization, Disabling, Other)
  Sender: FDA-Public Use
  Company Number: US-MERCK-0509USA02569

PATIENT
  Age: 62 Year
  Sex: Female
  Weight: 68 kg

DRUGS (3)
  1. VYTORIN [Suspect]
     Indication: DYSLIPIDAEMIA
     Route: 048
     Dates: start: 20050501, end: 20050601
  2. ASPIRIN [Concomitant]
     Route: 048
  3. VITAMINS (UNSPECIFIED) [Concomitant]
     Route: 065

REACTIONS (8)
  - ACUTE PROMYELOCYTIC LEUKAEMIA [None]
  - CONTUSION [None]
  - ECCHYMOSIS [None]
  - EPISTAXIS [None]
  - MUSCULAR WEAKNESS [None]
  - MYALGIA [None]
  - NEUTROPENIA [None]
  - PANCYTOPENIA [None]
